FAERS Safety Report 8524144-8 (Version None)
Quarter: 2012Q3

REPORT INFORMATION
  Report Type: 
  Country: None (occurrence: None)
  Receive Date: 20120720
  Receipt Date: 20120713
  Transmission Date: 20120928
  Serious: Yes (Hospitalization, Other)
  Sender: FDA-Public Use
  Company Number: KR-JNJFOC-20111007245

PATIENT
  Age: 57 Year
  Sex: Female

DRUGS (11)
  1. RISPERDAL [Suspect]
     Indication: PSYCHOTIC DISORDER
     Route: 048
     Dates: start: 20090617
  2. BENZTROPINE MESYLATE [Concomitant]
     Route: 065
  3. INVEGA [Suspect]
     Route: 048
  4. XANAX [Concomitant]
     Route: 065
  5. PROPRANOLOL HYDROCHLORIDE [Concomitant]
     Route: 065
  6. LAMICTAL [Suspect]
     Indication: BIPOLAR DISORDER
     Route: 065
  7. LAMICTAL [Suspect]
     Indication: SCHIZOAFFECTIVE DISORDER
     Route: 065
  8. INVEGA [Suspect]
     Indication: PSYCHOTIC DISORDER
     Route: 048
  9. LAMICTAL [Suspect]
     Route: 065
     Dates: start: 20090801
  10. LAMICTAL [Suspect]
     Route: 065
     Dates: start: 20090801
  11. WELLBUTRIN [Concomitant]
     Route: 065

REACTIONS (3)
  - AGITATION [None]
  - DEPRESSED MOOD [None]
  - EXTRAPYRAMIDAL DISORDER [None]
